FAERS Safety Report 14346060 (Version 3)
Quarter: 2018Q1

REPORT INFORMATION
  Report Type: Spontaneous
  Country: US (occurrence: US)
  Receive Date: 20180103
  Receipt Date: 20180129
  Transmission Date: 20180509
  Serious: No
  Sender: FDA-Public Use
  Company Number: US-PFIZER INC-2018001176

PATIENT
  Age: 78 Year
  Sex: Male
  Weight: 118 kg

DRUGS (2)
  1. BOSULIF [Suspect]
     Active Substance: BOSUTINIB MONOHYDRATE
     Indication: CHRONIC MYELOID LEUKAEMIA
     Dosage: 500 MG, 1X/DAY
     Route: 048
     Dates: start: 20171218, end: 20171227
  2. XARELTO [Suspect]
     Active Substance: RIVAROXABAN
     Indication: ATRIAL FIBRILLATION
     Dosage: 15 MG, 1X/DAY
     Route: 048
     Dates: start: 2016, end: 20171224

REACTIONS (12)
  - Malaise [Recovering/Resolving]
  - Cough [Recovering/Resolving]
  - Diarrhoea [Recovering/Resolving]
  - Urinary incontinence [Recovering/Resolving]
  - Secretion discharge [Recovering/Resolving]
  - Rhinorrhoea [Recovering/Resolving]
  - Haemoptysis [Recovering/Resolving]
  - Epistaxis [Recovering/Resolving]
  - White blood cell count increased [Unknown]
  - Lethargy [Recovering/Resolving]
  - Fluid retention [Recovering/Resolving]
  - Feeling abnormal [Recovering/Resolving]

NARRATIVE: CASE EVENT DATE: 201712
